FAERS Safety Report 6934809-7 (Version None)
Quarter: 2010Q3

REPORT INFORMATION
  Report Type: 
  Country: None (occurrence: None)
  Receive Date: 20100820
  Receipt Date: 20100805
  Transmission Date: 20110219
  Serious: Yes (Other)
  Sender: FDA-Public Use
  Company Number: PHHY2010US50554

PATIENT
  Sex: Male
  Weight: 87 kg

DRUGS (4)
  1. RECLAST [Suspect]
     Indication: FIBROMUSCULAR DYSPLASIA
     Dosage: 5 MG/100ML
     Route: 042
     Dates: start: 20100408
  2. LISINOPRIL [Concomitant]
     Indication: HYPERTENSION
     Dosage: 20/12.5 MG DAILY
     Route: 048
     Dates: start: 20080101
  3. ASCORBIC ACID [Concomitant]
     Dosage: UNK
     Route: 048
     Dates: start: 20090101
  4. VITAMIN D [Concomitant]
     Dosage: UNK
     Route: 048
     Dates: start: 20090101

REACTIONS (4)
  - ASPIRATION PLEURAL CAVITY [None]
  - INDWELLING CATHETER MANAGEMENT [None]
  - PLEURAL EFFUSION [None]
  - PNEUMONIA [None]
